FAERS Safety Report 8908438 (Version 1)
Quarter: 2012Q4

REPORT INFORMATION
  Report Type: 
  Country: None (occurrence: US)
  Receive Date: 20121114
  Receipt Date: 20121114
  Transmission Date: 20130627
  Serious: Yes (Hospitalization)
  Sender: FDA-Public Use
  Company Number: -VALEANT-2012VX004895

PATIENT
  Age: 63 Year
  Sex: Male

DRUGS (7)
  1. MESTINON [Suspect]
     Indication: MYASTHENIA GRAVIS
     Route: 048
     Dates: start: 201209, end: 20121027
  2. MESTINON [Suspect]
     Indication: MYASTHENIA GRAVIS
     Route: 048
     Dates: start: 201209, end: 20121027
  3. MESTINON [Suspect]
     Indication: MYASTHENIA GRAVIS
     Route: 065
     Dates: start: 20121028
  4. PREDNISONE [Concomitant]
     Route: 065
     Dates: start: 201209
  5. BENICAR [Concomitant]
     Indication: HYPERTENSION
     Route: 065
  6. SERTRALINE [Concomitant]
     Route: 065
     Dates: start: 201209
  7. IMMUNOGLOBULIN [Concomitant]
     Route: 042
     Dates: start: 20121028

REACTIONS (7)
  - Hypertension [Recovering/Resolving]
  - Dyspnoea [Recovering/Resolving]
  - Heart rate decreased [Recovering/Resolving]
  - Abdominal pain [Not Recovered/Not Resolved]
  - Oliguria [Not Recovered/Not Resolved]
  - Muscle spasms [Not Recovered/Not Resolved]
  - Diarrhoea [Not Recovered/Not Resolved]
